FAERS Safety Report 10087051 (Version 2)
Quarter: 2014Q2

REPORT INFORMATION
  Report Type: Spontaneous
  Country: JP (occurrence: JP)
  Receive Date: 20140418
  Receipt Date: 20140418
  Transmission Date: 20141212
  Serious: Yes (Other)
  Sender: FDA-Public Use
  Company Number: JP-PFIZER INC-2014095595

PATIENT
  Age: 52 Year
  Sex: Male

DRUGS (2)
  1. METHYLPREDNISOLONE [Suspect]
     Indication: ACUTE RESPIRATORY DISTRESS SYNDROME
     Dosage: 1000 MG, DAILY
  2. METHYLPREDNISOLONE [Suspect]
     Dosage: TAPERED DOWN TO 40 MG, DAILY (0.5 MG/KG/DAY) ON DISEASE DAY-7

REACTIONS (1)
  - Delirium [Recovering/Resolving]
